FAERS Safety Report 5370031-6 (Version None)
Quarter: 2007Q2

REPORT INFORMATION
  Report Type: 
  Country: None (occurrence: None)
  Receive Date: 20070626
  Receipt Date: 20070615
  Transmission Date: 20071010
  Serious: Yes (Other)
  Sender: FDA-Public Use
  Company Number: PHBS2007JP05843

PATIENT
  Age: 72 Year
  Sex: Female

DRUGS (3)
  1. LAMISIL [Suspect]
     Indication: NAIL TINEA
     Dosage: 125 MG, UNK
     Route: 048
     Dates: start: 20051122, end: 20070327
  2. FOSAMAX [Concomitant]
     Dosage: UNK, UNK
     Route: 048
     Dates: start: 20070122
  3. GASTER [Concomitant]
     Dosage: 10 MG, UNK
     Route: 048
     Dates: start: 20060705

REACTIONS (2)
  - AMNESIA [None]
  - FEELING ABNORMAL [None]
